FAERS Safety Report 4889453-2 (Version None)
Quarter: 2006Q1

REPORT INFORMATION
  Report Type: 
  Country: None (occurrence: None)
  Receive Date: 20060120
  Receipt Date: 20060112
  Transmission Date: 20060701
  Serious: Yes (Other)
  Sender: FDA-Public Use
  Company Number: HQWYE323713JAN06

PATIENT
  Age: 68 Year
  Sex: Male
  Weight: 62.65 kg

DRUGS (4)
  1. PROTONIX [Suspect]
     Indication: GASTROOESOPHAGEAL REFLUX DISEASE
     Dosage: 40 MG 1X PER 1 DAY, ORAL
     Route: 048
     Dates: start: 20051216
  2. VYTORIN [Concomitant]
  3. ASPIRIN [Concomitant]
  4. CENTRUM (MULTIVITAMIN/MULTIMINERAL) [Concomitant]

REACTIONS (5)
  - ABDOMINAL PAIN [None]
  - BLOOD AMYLASE INCREASED [None]
  - LIPASE INCREASED [None]
  - RASH PRURITIC [None]
  - SKIN DISORDER [None]
